FAERS Safety Report 21950160 (Version 1)
Quarter: 2023Q1

REPORT INFORMATION
  Report Type: Report from Study
  Country: US (occurrence: US)
  Receive Date: 20230203
  Receipt Date: 20230203
  Transmission Date: 20230418
  Serious: Yes (Hospitalization)
  Sender: FDA-Public Use
  Company Number: US-002147023-NVSC2023US021542

PATIENT
  Age: 61 Year
  Sex: Male
  Weight: 81.6 kg

DRUGS (1)
  1. COSENTYX [Suspect]
     Active Substance: SECUKINUMAB
     Indication: Psoriasis
     Dosage: 300 MG, Q4W
     Route: 058
     Dates: start: 20160706, end: 20190227

REACTIONS (1)
  - Perirectal abscess [Recovered/Resolved]

NARRATIVE: CASE EVENT DATE: 20190424
